FAERS Safety Report 12069701 (Version 7)
Quarter: 2016Q3

REPORT INFORMATION
  Report Type: Spontaneous
  Country: US (occurrence: US)
  Receive Date: 20160211
  Receipt Date: 20160815
  Transmission Date: 20161109
  Serious: Yes (Death)
  Sender: FDA-Public Use
  Company Number: US-PFIZER INC-2016031114

PATIENT
  Age: 72 Year
  Sex: Male
  Weight: 95.2 kg

DRUGS (6)
  1. SUTENT [Suspect]
     Active Substance: SUNITINIB MALATE
     Dosage: 25 MG, DAILY
     Route: 048
     Dates: start: 20151229
  2. SUTENT [Suspect]
     Active Substance: SUNITINIB MALATE
     Dosage: 37.5 MG, DAILY
     Dates: start: 20160119, end: 20160211
  3. SUTENT [Suspect]
     Active Substance: SUNITINIB MALATE
     Indication: PANCREATIC CARCINOMA
     Dosage: 37.5 MG, DAILY
     Dates: start: 20120315, end: 20151201
  4. SUTENT [Suspect]
     Active Substance: SUNITINIB MALATE
     Dosage: 37.5 MG, DAILY
     Dates: start: 20160317
  5. LOMOTIL [Concomitant]
     Active Substance: ATROPINE SULFATE\DIPHENOXYLATE HYDROCHLORIDE
     Dosage: UNK
  6. SUTENT [Suspect]
     Active Substance: SUNITINIB MALATE
     Dosage: 25 MG, DAILY

REACTIONS (16)
  - Weight decreased [Unknown]
  - Decreased appetite [Unknown]
  - Confusional state [Unknown]
  - Balance disorder [Unknown]
  - Flushing [Unknown]
  - Mucosal inflammation [Recovered/Resolved]
  - Diarrhoea [Recovered/Resolved]
  - Blood glucose decreased [Unknown]
  - Hypersomnia [Unknown]
  - Contusion [Not Recovered/Not Resolved]
  - Death [Fatal]
  - Fall [Unknown]
  - Asthenia [Unknown]
  - Fatigue [Unknown]
  - Oral disorder [Unknown]
  - Skin abrasion [Unknown]

NARRATIVE: CASE EVENT DATE: 20160211
